FAERS Safety Report 5858247-3 (Version None)
Quarter: 2008Q3

REPORT INFORMATION
  Report Type: 
  Country: None (occurrence: None)
  Receive Date: 20080826
  Receipt Date: 20080819
  Transmission Date: 20090109
  Serious: Yes (Other)
  Sender: FDA-Public Use
  Company Number: A0743302A

PATIENT
  Age: 53 Year
  Sex: Male

DRUGS (3)
  1. LAMICTAL [Suspect]
     Dosage: 100MG VARIABLE DOSE
     Route: 048
  2. ZOLOFT [Concomitant]
  3. ALPRAZOLAM [Concomitant]

REACTIONS (6)
  - CONVULSION [None]
  - DYSARTHRIA [None]
  - HALLUCINATION [None]
  - HYPERSOMNIA [None]
  - MEMORY IMPAIRMENT [None]
  - SPEECH DISORDER [None]
